FAERS Safety Report 23631739 (Version 1)
Quarter: 2024Q1

REPORT INFORMATION
  Report Type: Spontaneous
  Country: US (occurrence: None)
  Receive Date: 20240313
  Receipt Date: 20240313
  Transmission Date: 20240410
  Serious: Yes (Death)
  Sender: FDA-Public Use
  Company Number: None

PATIENT
  Age: 85 Year
  Sex: Female

DRUGS (1)
  1. OPSUMIT [Suspect]
     Active Substance: MACITENTAN
     Indication: Pulmonary hypertension
     Dosage: FREQUENCY : DAILY;?
     Route: 048
     Dates: start: 20171102, end: 20231123

REACTIONS (4)
  - Acute respiratory failure [None]
  - Pulmonary arterial hypertension [None]
  - Condition aggravated [None]
  - Cardiac arrest [None]

NARRATIVE: CASE EVENT DATE: 20211123
